FAERS Safety Report 20125409 (Version 1)
Quarter: 2021Q4

REPORT INFORMATION
  Report Type: Spontaneous
  Country: PL (occurrence: PL)
  Receive Date: 20211129
  Receipt Date: 20211129
  Transmission Date: 20220304
  Serious: Yes (Death, Life-Threatening, Other)
  Sender: FDA-Public Use
  Company Number: None

PATIENT
  Age: 10 Day
  Sex: Female
  Weight: 3.58 kg

DRUGS (3)
  1. VANCOMYCIN [Suspect]
     Active Substance: VANCOMYCIN
     Indication: Neonatal infection
     Dosage: DOSE: 35 MG EVERY 8 HOURS, 60 MINUTES. ON 2021/08/26 DRUG STARTED AT 21:47.
     Route: 041
     Dates: end: 20210826
  2. VANCOMYCIN [Suspect]
     Active Substance: VANCOMYCIN
     Indication: Staphylococcus test positive
  3. VANCOMYCIN [Suspect]
     Active Substance: VANCOMYCIN
     Indication: Intrauterine infection

REACTIONS (3)
  - Anaphylactic reaction [Fatal]
  - Neonatal cardiac failure [Fatal]
  - Neonatal respiratory failure [Fatal]

NARRATIVE: CASE EVENT DATE: 20210826
